FAERS Safety Report 8790794 (Version 1)
Quarter: 2012Q4

REPORT INFORMATION
  Report Type: Spontaneous
  Country: US (occurrence: None)
  Receive Date: 20120906
  Receipt Date: 20120906
  Transmission Date: 20130627
  Serious: Yes (Hospitalization)
  Sender: FDA-Public Use
  Company Number: 100224-000049

PATIENT
  Sex: Female

DRUGS (3)
  1. PROACTIV RENEWING CLEANSER [Suspect]
     Indication: ACNE
     Dosage: once daily dermal
     Dates: start: 20100220
  2. PROACTIV RENEWING CLEANSER [Suspect]
     Indication: ACNE
     Dosage: once daily dermal
     Dates: start: 20100220
  3. PROACTIV REFINING MASK [Suspect]
     Indication: ACNE
     Dosage: once daily dermal
     Dates: start: 20100210

REACTIONS (2)
  - Rash generalised [None]
  - Infection [None]
